FAERS Safety Report 6738993-X (Version None)
Quarter: 2010Q2

REPORT INFORMATION
  Report Type: 
  Country: None (occurrence: None)
  Receive Date: 20100524
  Receipt Date: 20100524
  Transmission Date: 20101027
  Serious: Yes (Hospitalization)
  Sender: FDA-Public Use
  Company Number: None

PATIENT
  Age: 58 Year
  Sex: Female
  Weight: 47 kg

DRUGS (2)
  1. DOXORUBICIN 60 MG/M2 IV EVERY 2 WEEKS [Suspect]
     Indication: BREAST CANCER STAGE III
     Dosage: 85 MG Q2WEEKS INTRAVENOUS
     Route: 042
     Dates: start: 20100406, end: 20100512
  2. CYCLOPHOSPHAMIDE 600 MG/M2 IV EVERY 2 WEEKS [Suspect]
     Indication: BREAST CANCER STAGE III
     Dosage: 850 MG Q2WEEKS INTRAVENOUS
     Route: 042
     Dates: start: 20100406, end: 20100512

REACTIONS (3)
  - ANAEMIA [None]
  - LEUKOPENIA [None]
  - OEDEMA PERIPHERAL [None]
